FAERS Safety Report 10236715 (Version 1)
Quarter: 2014Q2

REPORT INFORMATION
  Report Type: Spontaneous
  Country: GB (occurrence: GB)
  Receive Date: 20140613
  Receipt Date: 20140613
  Transmission Date: 20141212
  Serious: Yes (Other)
  Sender: FDA-Public Use
  Company Number: GB-ELI_LILLY_AND_COMPANY-GB201406000823

PATIENT
  Sex: Female

DRUGS (1)
  1. INSULIN LISPRO [Suspect]
     Indication: DIABETES MELLITUS
     Dosage: 25 U, QD
     Route: 058

REACTIONS (7)
  - Kidney infection [Not Recovered/Not Resolved]
  - Urine ketone body [Not Recovered/Not Resolved]
  - Blood pressure increased [Not Recovered/Not Resolved]
  - Blood glucose increased [Not Recovered/Not Resolved]
  - Confusional state [Not Recovered/Not Resolved]
  - Expired product administered [Recovered/Resolved]
  - Medication error [Recovered/Resolved]
